FAERS Safety Report 6543834-X (Version None)
Quarter: 2010Q1

REPORT INFORMATION
  Report Type: 
  Country: None (occurrence: None)
  Receive Date: 20100119
  Receipt Date: 20100119
  Transmission Date: 20100710
  Serious: Yes (Other)
  Sender: FDA-Public Use
  Company Number: None

PATIENT
  Age: 5 Year
  Sex: Male
  Weight: 18.1439 kg

DRUGS (1)
  1. CHILDRENSTYLENOL MELTAWAYS 80 MG EACH [Suspect]
     Indication: GROWING PAINS
     Dosage: 3 TABLETS 406 HOURS PO
     Route: 048
     Dates: start: 20091213, end: 20091213

REACTIONS (3)
  - MIDDLE INSOMNIA [None]
  - PRODUCT QUALITY ISSUE [None]
  - VOMITING [None]
